FAERS Safety Report 7225988-5 (Version None)
Quarter: 2011Q1

REPORT INFORMATION
  Report Type: 
  Country: None (occurrence: None)
  Receive Date: 20110113
  Receipt Date: 20101231
  Transmission Date: 20110831
  Serious: Yes (Other)
  Sender: FDA-Public Use
  Company Number: IT-MYLANLABS-2010S1018399

PATIENT
  Age: 79 Year
  Sex: Male

DRUGS (1)
  1. MYLAN-ENALAPRIL [Suspect]
     Indication: HYPERTENSION
     Route: 048
     Dates: start: 20100913, end: 20100915

REACTIONS (2)
  - SYNCOPE [None]
  - PRODUCT SUBSTITUTION ISSUE [None]
